FAERS Safety Report 8490530-8 (Version None)
Quarter: 2012Q3

REPORT INFORMATION
  Report Type: 
  Country: None (occurrence: None)
  Receive Date: 20120705
  Receipt Date: 20120621
  Transmission Date: 20120928
  Serious: No
  Sender: FDA-Public Use
  Company Number: US-ASTRAZENECA-2012SE41968

PATIENT
  Age: 770 Month
  Sex: Male
  Weight: 81.6 kg

DRUGS (3)
  1. ANTIHYPERTENSIVE [Concomitant]
  2. NEXIUM [Suspect]
     Route: 048
     Dates: start: 20120401
  3. CHOLESTEROL DRUG [Concomitant]

REACTIONS (6)
  - ABDOMINAL PAIN [None]
  - HYPOACUSIS [None]
  - CIRCUMSTANCE OR INFORMATION CAPABLE OF LEADING TO MEDICATION ERROR [None]
  - GASTROOESOPHAGEAL REFLUX DISEASE [None]
  - BARRETT'S OESOPHAGUS [None]
  - ABDOMINAL PAIN UPPER [None]
